FAERS Safety Report 9781383 (Version 1)
Quarter: 2013Q4

REPORT INFORMATION
  Report Type: Spontaneous
  Country: US (occurrence: None)
  Receive Date: 20131223
  Receipt Date: 20131223
  Transmission Date: 20140711
  Serious: Yes (Hospitalization)
  Sender: FDA-Public Use
  Company Number: None

PATIENT
  Age: 18 Year
  Sex: Female
  Weight: 34 kg

DRUGS (14)
  1. LEVAQUIN 500 MG. JANSSEN [Suspect]
     Indication: PNEUMONIA
     Route: 042
     Dates: start: 20131211, end: 20131213
  2. NORCO [Concomitant]
  3. PHENERGAN [Concomitant]
  4. PROTONIX [Concomitant]
  5. TYLENOL [Concomitant]
  6. VANCOCIN [Concomitant]
  7. ZENPEP [Concomitant]
  8. ZOFRAN [Concomitant]
  9. ZOSYN [Concomitant]
  10. ALBUTEROL NEB [Concomitant]
  11. DOXYCYCLINE [Concomitant]
  12. ENOXAPARIN [Concomitant]
  13. PROPOFOL [Concomitant]
  14. SODIUM BICARBONATE [Concomitant]

REACTIONS (1)
  - Swollen tongue [None]
